FAERS Safety Report 25380024 (Version 3)
Quarter: 2025Q3

REPORT INFORMATION
  Report Type: Report from Study
  Country: KR (occurrence: KR)
  Receive Date: 20250530
  Receipt Date: 20250715
  Transmission Date: 20251021
  Serious: Yes (Other)
  Sender: TAKEDA
  Company Number: KR-TAKEDA-2025TUS050255

PATIENT
  Age: 61 Year
  Sex: Female
  Weight: 54 kg

DRUGS (14)
  1. MARIBAVIR [Suspect]
     Active Substance: MARIBAVIR
     Indication: Cytomegalovirus infection
     Dosage: 400 MILLIGRAM, BID
     Dates: start: 20250310, end: 20250406
  2. RIVOTRIL [Concomitant]
     Active Substance: CLONAZEPAM
     Indication: Insomnia
     Dosage: 0.5 MILLIGRAM, QD
     Dates: start: 20201020
  3. TACROLIMUS [Concomitant]
     Active Substance: TACROLIMUS
     Indication: Graft versus host disease
     Dosage: 0.75 MILLIGRAM, QD
     Dates: start: 20250304, end: 20250325
  4. XOSPATA [Concomitant]
     Active Substance: GILTERITINIB
     Indication: Acute myeloid leukaemia
     Dosage: 80 MILLIGRAM, QD
     Dates: start: 20250108
  5. URSODIOL [Concomitant]
     Active Substance: URSODIOL
     Indication: Acute graft versus host disease in liver
     Dosage: 400 MILLIGRAM, BID
     Dates: start: 20241224
  6. DIETARY SUPPLEMENT\HERBALS\MILK THISTLE [Concomitant]
     Active Substance: MILK THISTLE
     Indication: Acute graft versus host disease in liver
     Dosage: 140 MILLIGRAM, QD
     Dates: start: 20250121
  7. NEURONTIN [Concomitant]
     Active Substance: GABAPENTIN
     Indication: Neuropathy peripheral
     Dosage: 100 MILLIGRAM, BID
     Dates: start: 20250211
  8. SALAGEN [Concomitant]
     Active Substance: PILOCARPINE HYDROCHLORIDE
     Indication: Dry mouth
     Dosage: 5 MILLIGRAM, BID
     Dates: start: 20241213
  9. COUGH SYRUP [Concomitant]
     Active Substance: DEXTROMETHORPHAN HYDROBROMIDE\GUAIFENESIN
     Indication: Cough
     Dosage: 20 MILLILITER, TID
     Dates: start: 20250224, end: 20250501
  10. Dulackhan easy [Concomitant]
     Indication: Constipation
     Dosage: 15 MILLILITER, TID
     Dates: start: 20250302, end: 20250325
  11. TEGOPRAZAN [Concomitant]
     Active Substance: TEGOPRAZAN
     Indication: Gastritis
     Dosage: 50 MILLIGRAM, QD
     Dates: start: 20241104, end: 20250414
  12. SULFAMETHOXAZOLE\TRIMETHOPRIM [Concomitant]
     Active Substance: SULFAMETHOXAZOLE\TRIMETHOPRIM
     Indication: Infection
     Dosage: UNK UNK, QD
     Dates: start: 20241104, end: 20250325
  13. Movizolo [Concomitant]
     Indication: Gastritis
     Dosage: 2 MILLIGRAM, QD
     Dates: start: 20250314, end: 20250325
  14. ACETYLCYSTEINE [Concomitant]
     Active Substance: ACETYLCYSTEINE
     Indication: Productive cough
     Dosage: 200 MILLIGRAM, TID
     Dates: start: 20250319, end: 20250407

REACTIONS (2)
  - Cytomegalovirus viraemia [Recovered/Resolved]
  - Oral herpes [Recovered/Resolved]

NARRATIVE: CASE EVENT DATE: 20250408
